FAERS Safety Report 8603898-6 (Version None)
Quarter: 2012Q3

REPORT INFORMATION
  Report Type: 
  Country: None (occurrence: None)
  Receive Date: 20120820
  Receipt Date: 20120810
  Transmission Date: 20120928
  Serious: Yes (Other)
  Sender: FDA-Public Use
  Company Number: CO-AMGEN-COLSP2012051467

PATIENT
  Age: 56 Year
  Sex: Female

DRUGS (7)
  1. LOSARTAN POTASSIUM [Concomitant]
     Indication: HYPERTENSION
     Dosage: 50 MG, 1X/DAY
     Route: 048
     Dates: start: 20020101
  2. ASPIRIN [Concomitant]
     Dosage: UNK
  3. ERGOCALCIFEROL [Concomitant]
     Dosage: 500 MG, UNK
  4. METOPROLOL TARTRATE [Concomitant]
     Dosage: 100 MG, UNK
  5. SIMETICONE W/TRIMEBUTINE [Concomitant]
     Dosage: 300 MG, UNK
  6. ENBREL [Suspect]
     Indication: RHEUMATOID ARTHRITIS
     Dosage: 50 MG, WEEKLY
     Route: 058
     Dates: start: 20090101
  7. TIROXINA [Concomitant]
     Indication: HYPOTHYROIDISM
     Dosage: 100 MG, 1X/DAY
     Route: 048
     Dates: start: 20080101

REACTIONS (3)
  - TUBERCULOSIS [None]
  - CATARACT [None]
  - IRRITABLE BOWEL SYNDROME [None]
